FAERS Safety Report 4340857-6 (Version None)
Quarter: 2004Q2

REPORT INFORMATION
  Report Type: 
  Country: None (occurrence: None)
  Receive Date: 20040414
  Receipt Date: 20040406
  Transmission Date: 20050107
  Serious: Yes (Hospitalization)
  Sender: FDA-Public Use
  Company Number: A01200400686

PATIENT
  Age: 66 Year
  Sex: Male

DRUGS (10)
  1. CLOPIDOGREL BISULFATE [Suspect]
     Indication: CEREBROVASCULAR ACCIDENT
     Dosage: 75 MG OD
     Route: 048
  2. ASPIRIN [Concomitant]
  3. AMARYL [Concomitant]
  4. IMDUR [Concomitant]
  5. METFORMIN HYDROCHLORIDE [Concomitant]
  6. ZOCOR [Concomitant]
  7. ZANTAC [Concomitant]
  8. PANADAOL (PARACETAMOL) [Concomitant]
  9. RAMIPRIL [Concomitant]
  10. DIURETICS [Concomitant]

REACTIONS (11)
  - ASTHENIA [None]
  - BLOOD LACTATE DEHYDROGENASE INCREASED [None]
  - DYSPNOEA [None]
  - FATIGUE [None]
  - FIBRIN D DIMER INCREASED [None]
  - HELICOBACTER INFECTION [None]
  - MARROW HYPERPLASIA [None]
  - MYELODYSPLASTIC SYNDROME [None]
  - OESOPHAGITIS [None]
  - RED BLOOD CELL SEDIMENTATION RATE INCREASED [None]
  - REFRACTORY ANAEMIA [None]
